FAERS Safety Report 10785347 (Version 1)
Quarter: 2015Q1

REPORT INFORMATION
  Report Type: Spontaneous
  Country: GB (occurrence: GB)
  Receive Date: 20150211
  Receipt Date: 20150211
  Transmission Date: 20150721
  Serious: Yes (Other)
  Sender: FDA-Public Use
  Company Number: GB-AUROBINDO-AUR-APL-2015-01000

PATIENT

DRUGS (3)
  1. MONTELUKAST [Suspect]
     Active Substance: MONTELUKAST SODIUM
     Indication: CHRONIC SPONTANEOUS URTICARIA
     Dosage: 10 MG, FOUR TIMES/DAY
     Route: 065
     Dates: start: 201405
  2. CICLOSPORIN [Suspect]
     Active Substance: CYCLOSPORINE
     Indication: CHRONIC SPONTANEOUS URTICARIA
     Dosage: 50 MG, TWO TIMES A DAY
     Route: 065
     Dates: start: 201405
  3. CETRIZINE [Suspect]
     Active Substance: CETIRIZINE HYDROCHLORIDE
     Indication: CHRONIC SPONTANEOUS URTICARIA
     Dosage: 10 MG, FOUR TIMES/DAY
     Route: 065
     Dates: start: 201405

REACTIONS (3)
  - Condition aggravated [Unknown]
  - Off label use [Unknown]
  - Chronic spontaneous urticaria [Unknown]
